FAERS Safety Report 19301081 (Version 2)
Quarter: 2021Q2

REPORT INFORMATION
  Report Type: Spontaneous
  Country: CN (occurrence: CN)
  Receive Date: 20210525
  Receipt Date: 20210601
  Transmission Date: 20210717
  Serious: No
  Sender: FDA-Public Use
  Company Number: CN-TOPROL-2021000105

PATIENT
  Sex: Male

DRUGS (1)
  1. BETALOC [Suspect]
     Active Substance: METOPROLOL
     Dosage: 47.5MG UNKNOWN
     Route: 048

REACTIONS (3)
  - Pollakiuria [Unknown]
  - Frequent bowel movements [Unknown]
  - Abdominal pain [Unknown]
